FAERS Safety Report 10434389 (Version 2)
Quarter: 2014Q4

REPORT INFORMATION
  Report Type: Spontaneous
  Country: US (occurrence: US)
  Receive Date: 20140905
  Receipt Date: 20141003
  Transmission Date: 20150528
  Serious: Yes (Hospitalization, Other)
  Sender: FDA-Public Use
  Company Number: US-009507513-1409USA002711

PATIENT
  Sex: Female
  Weight: 87.75 kg

DRUGS (1)
  1. JANUVIA [Suspect]
     Active Substance: SITAGLIPTIN PHOSPHATE
     Indication: TYPE 2 DIABETES MELLITUS
     Dosage: 100 MG, BID
     Route: 048
     Dates: start: 20101111, end: 20110617

REACTIONS (29)
  - Hypertensive crisis [Recovering/Resolving]
  - Knee arthroplasty [Unknown]
  - Insulin-requiring type 2 diabetes mellitus [Unknown]
  - Hysterectomy [Unknown]
  - Parathyroidectomy [Unknown]
  - Pancreatitis acute [Unknown]
  - Fear [Unknown]
  - Pancreatectomy [Unknown]
  - Hypothyroidism [Unknown]
  - Nephrolithiasis [Unknown]
  - Ankle arthroplasty [Unknown]
  - Hyperlipidaemia [Unknown]
  - Cataract operation [Unknown]
  - Kidney fibrosis [Unknown]
  - Depression [Unknown]
  - Parathyroid tumour benign [Unknown]
  - Metabolic encephalopathy [Recovering/Resolving]
  - Fatigue [Unknown]
  - Constipation [Recovering/Resolving]
  - Essential hypertension [Unknown]
  - Appendicectomy [Unknown]
  - Inappropriate schedule of drug administration [Unknown]
  - Anxiety [Unknown]
  - Adenocarcinoma pancreas [Unknown]
  - Hyperparathyroidism primary [Unknown]
  - Tonsillectomy [Unknown]
  - Salpingo-oophorectomy bilateral [Unknown]
  - Memory impairment [Unknown]
  - Insulin resistant diabetes [Recovering/Resolving]

NARRATIVE: CASE EVENT DATE: 20101111
